FAERS Safety Report 17551565 (Version 2)
Quarter: 2021Q1

REPORT INFORMATION
  Report Type: Spontaneous
  Country: US (occurrence: US)
  Receive Date: 20200317
  Receipt Date: 20210225
  Transmission Date: 20210419
  Serious: No
  Sender: FDA-Public Use
  Company Number: US-SA-2020SA067788

PATIENT

DRUGS (1)
  1. ADMELOG [Suspect]
     Active Substance: INSULIN LISPRO
     Dosage: UNK
     Route: 065

REACTIONS (4)
  - Musculoskeletal discomfort [Unknown]
  - Blood glucose increased [Unknown]
  - Limb discomfort [Unknown]
  - Therapeutic response decreased [Unknown]
